FAERS Safety Report 9337771 (Version 1)
Quarter: 2013Q2

REPORT INFORMATION
  Report Type: Spontaneous
  Country: US (occurrence: US)
  Receive Date: 20130607
  Receipt Date: 20130607
  Transmission Date: 20140414
  Serious: Yes (Other)
  Sender: FDA-Public Use
  Company Number: US-UCBSA-087379

PATIENT
  Age: 43 Year
  Sex: Female
  Weight: 127 kg

DRUGS (2)
  1. CIMZIA [Suspect]
     Indication: CROHN^S DISEASE
     Dosage: UNKNOWN DOSE, INJECTION
     Dates: end: 2013
  2. CYMBALTA [Concomitant]
     Dosage: UNKNOWN DOSE

REACTIONS (3)
  - Crohn^s disease [Recovered/Resolved]
  - Sinus disorder [Not Recovered/Not Resolved]
  - Respiratory tract congestion [Not Recovered/Not Resolved]
